FAERS Safety Report 7867965-7 (Version None)
Quarter: 2011Q4

REPORT INFORMATION
  Report Type: 
  Country: None (occurrence: None)
  Receive Date: 20111028
  Receipt Date: 20111014
  Transmission Date: 20120403
  Serious: Yes (Other)
  Sender: FDA-Public Use
  Company Number: CN-COVIDIEN/TYCO HEALTHCARE/MALLINCKRODT-T201102266

PATIENT

DRUGS (2)
  1. EXALGO [Suspect]
     Indication: CANCER PAIN
     Dosage: 1 DOSE EVERY 12 HOURS
     Route: 048
     Dates: start: 20110106, end: 20110113
  2. OXYCONTIN [Suspect]
     Indication: CANCER PAIN
     Dosage: 1 DOSE EVERY 12 HOURS
     Route: 048

REACTIONS (2)
  - INTESTINAL OBSTRUCTION [None]
  - ABDOMINAL PAIN [None]
